FAERS Safety Report 4559751-0 (Version None)
Quarter: 2005Q1

REPORT INFORMATION
  Report Type: 
  Country: None (occurrence: None)
  Receive Date: 20050114
  Receipt Date: 20040505
  Transmission Date: 20050727
  Serious: Yes (Hospitalization)
  Sender: FDA-Public Use
  Company Number: BDI-006128

PATIENT
  Age: 38 Year
  Sex: Female
  Weight: 50 kg

DRUGS (4)
  1. PROHANCE [Suspect]
     Indication: CONVULSION
     Dosage: 11 ML ONCE IV
     Route: 042
     Dates: start: 20040504, end: 20040504
  2. PROHANCE [Suspect]
     Indication: NUCLEAR MAGNETIC RESONANCE IMAGING BRAIN
     Dosage: 11 ML ONCE IV
     Route: 042
     Dates: start: 20040504, end: 20040504
  3. EFFEXOR [Concomitant]
  4. NEURONTIN [Concomitant]

REACTIONS (3)
  - OEDEMA MOUTH [None]
  - PRURITUS [None]
  - SWELLING FACE [None]
